FAERS Safety Report 4773644-5 (Version None)
Quarter: 2005Q3

REPORT INFORMATION
  Report Type: 
  Country: None (occurrence: None)
  Receive Date: 20050914
  Receipt Date: 20041015
  Transmission Date: 20060218
  Serious: Yes (Death)
  Sender: FDA-Public Use
  Company Number: 163-20785-04100451

PATIENT
  Age: 61 Year
  Sex: Male

DRUGS (1)
  1. THALOMID [Suspect]
     Indication: GRAFT VERSUS HOST DISEASE
     Dosage: 50-300MG, QD, ORAL
     Route: 048
     Dates: start: 20040519, end: 20040801

REACTIONS (3)
  - COMPLICATIONS OF BONE MARROW TRANSPLANT [None]
  - DISEASE PROGRESSION [None]
  - GRAFT VERSUS HOST DISEASE [None]
